FAERS Safety Report 9217552 (Version 5)
Quarter: 2013Q2

REPORT INFORMATION
  Report Type: Spontaneous
  Country: JP (occurrence: JP)
  Receive Date: 20130408
  Receipt Date: 20130627
  Transmission Date: 20140414
  Serious: Yes (Hospitalization)
  Sender: FDA-Public Use
  Company Number: JP-ASTRAZENECA-2013SE21300

PATIENT
  Age: 27069 Day
  Sex: Female
  Weight: 45 kg

DRUGS (20)
  1. SYMBICORT TURBUHALER [Suspect]
     Indication: EMPHYSEMA
     Dosage: 2 PUFF TWICE DAILY
     Route: 055
  2. MYSLEE [Suspect]
     Indication: INSOMNIA
     Route: 048
     Dates: end: 20130228
  3. MYSLEE [Suspect]
     Indication: INSOMNIA
     Dosage: 5 MG, DAILY; UNKNOWN BRAND
     Route: 048
     Dates: start: 20130228
  4. ADOAIR [Concomitant]
     Indication: EMPHYSEMA
     Route: 055
  5. SPIRIVA [Concomitant]
     Indication: EMPHYSEMA
     Route: 055
  6. OMEPRAL [Concomitant]
     Indication: GASTROOESOPHAGEAL REFLUX DISEASE
     Route: 048
  7. RIZE [Concomitant]
     Indication: INSOMNIA
     Route: 048
     Dates: end: 20130228
  8. BISOLVON [Concomitant]
     Indication: EMPHYSEMA
     Route: 048
     Dates: end: 20130228
  9. METHISTA [Concomitant]
     Indication: EMPHYSEMA
     Route: 048
     Dates: end: 20130228
  10. MEVALOTIN [Concomitant]
     Indication: HYPERCHOLESTEROLAEMIA
     Route: 048
     Dates: end: 20130228
  11. LORCAM [Concomitant]
     Route: 048
     Dates: end: 20130228
  12. ADETPHOS [Concomitant]
     Route: 048
  13. METHYCOBAL [Concomitant]
     Route: 048
  14. PURSENNID [Concomitant]
     Indication: CONSTIPATION
     Route: 048
     Dates: end: 20130228
  15. GASMOTIN [Concomitant]
     Route: 048
     Dates: end: 20130228
  16. LIDUC M [Concomitant]
     Indication: HYPERCHOLESTEROLAEMIA
     Route: 048
     Dates: start: 20130228
  17. ALOSENN [Concomitant]
     Indication: CONSTIPATION
     Route: 048
     Dates: start: 20130228
  18. MOSAPRIDE CITRATE HYDRATE [Concomitant]
     Route: 048
     Dates: start: 20130228
  19. DEPAS [Concomitant]
     Indication: INSOMNIA
     Dosage: DOSE UNKNOWN
     Route: 065
  20. DEPAS [Concomitant]
     Indication: INSOMNIA
     Dosage: 0.5 MG, TID, ETIZOLAM - UNKNOWN BRAND
     Route: 065
     Dates: start: 20130228

REACTIONS (2)
  - Femoral neck fracture [Recovering/Resolving]
  - Fall [Unknown]
